FAERS Safety Report 5223661-6 (Version None)
Quarter: 2007Q1

REPORT INFORMATION
  Report Type: 
  Country: None (occurrence: None)
  Receive Date: 20070130
  Receipt Date: 20070117
  Transmission Date: 20070707
  Serious: Yes (Hospitalization)
  Sender: FDA-Public Use
  Company Number: US-SANOFI-SYNTHELABO-A03200700541

PATIENT
  Age: 66 Year
  Sex: Male
  Weight: 111.4 kg

DRUGS (13)
  1. PLAVIX [Suspect]
     Route: 048
     Dates: start: 20061101, end: 20061101
  2. PLAVIX [Suspect]
     Route: 048
     Dates: start: 20061101, end: 20061101
  3. PLAVIX [Suspect]
     Route: 048
     Dates: start: 20061101, end: 20061103
  4. RAMIPRIL [Concomitant]
     Dosage: UNK
     Route: 048
     Dates: start: 20061101, end: 20061101
  5. METOPROLOL TARTRATE [Concomitant]
  6. FUROSEMIDE [Concomitant]
  7. NITROGLYCERIN [Concomitant]
  8. LISINOPRIL [Concomitant]
  9. GEMFIBROZIL [Concomitant]
     Dosage: UNK
     Route: 048
  10. ASPIRIN [Concomitant]
     Dosage: UNK
     Route: 048
     Dates: start: 20061031, end: 20061101
  11. INTEGRILIN [Suspect]
     Dosage: 200 MCG/MIN CONTINOUS
     Route: 042
     Dates: start: 20061101, end: 20061101
  12. ENOXAPARIN SODIUM [Suspect]
     Route: 058
     Dates: start: 20061101, end: 20061101
  13. ENOXAPARIN SODIUM [Suspect]
     Route: 058
     Dates: start: 20061101, end: 20061101

REACTIONS (2)
  - PRESCRIBED OVERDOSE [None]
  - VASCULAR PSEUDOANEURYSM [None]
